FAERS Safety Report 7925585-X (Version None)
Quarter: 2011Q4

REPORT INFORMATION
  Report Type: 
  Country: None (occurrence: None)
  Receive Date: 20111118
  Receipt Date: 20110408
  Transmission Date: 20120403
  Serious: No
  Sender: FDA-Public Use
  Company Number: US-AMGEN-USASP2011018935

PATIENT
  Age: 55 Year
  Sex: Male
  Weight: 132 kg

DRUGS (2)
  1. MULTIVITAMIN                       /00097801/ [Concomitant]
  2. ENBREL [Suspect]
     Indication: PRODUCT USED FOR UNKNOWN INDICATION
     Dosage: 25 MG, 2 TIMES/WK
     Route: 058

REACTIONS (1)
  - PEMPHIGUS [None]
